FAERS Safety Report 8100241-6 (Version None)
Quarter: 2012Q1

REPORT INFORMATION
  Report Type: 
  Country: None (occurrence: None)
  Receive Date: 20120131
  Receipt Date: 20120120
  Transmission Date: 20120608
  Serious: Yes (Hospitalization)
  Sender: FDA-Public Use
  Company Number: AU-JNJFOC-20120110165

PATIENT
  Sex: Female

DRUGS (6)
  1. MESALAMINE [Concomitant]
     Route: 065
  2. PREDNISOLONE [Concomitant]
     Route: 065
  3. REMICADE [Suspect]
     Indication: CROHN'S DISEASE
     Route: 042
     Dates: start: 20100717, end: 20111028
  4. REMICADE [Suspect]
     Route: 042
     Dates: start: 20080101, end: 20080101
  5. NEXIUM [Concomitant]
     Route: 065
  6. IMURAN [Concomitant]
     Route: 065

REACTIONS (3)
  - DRUG INEFFECTIVE [None]
  - MALAISE [None]
  - THERAPEUTIC RESPONSE DECREASED [None]
